FAERS Safety Report 24935244 (Version 3)
Quarter: 2025Q1

REPORT INFORMATION
  Report Type: Report from Study
  Country: LT (occurrence: LT)
  Receive Date: 20250206
  Receipt Date: 20250228
  Transmission Date: 20250408
  Serious: Yes (Other)
  Sender: ROCHE
  Company Number: LT-ROCHE-10000200801

PATIENT
  Age: 54 Year
  Sex: Female

DRUGS (2)
  1. INAVOLISIB [Suspect]
     Active Substance: INAVOLISIB
     Indication: Breast cancer
     Dosage: MEDICATION ADMINISTERED BEFORE AE 2 WEEKS
     Route: 048
     Dates: start: 20250109
  2. INAVOLISIB [Suspect]
     Active Substance: INAVOLISIB
     Dosage: DOSE REDUCTION
     Route: 048
     Dates: start: 20250204

REACTIONS (2)
  - Rash [Recovering/Resolving]
  - Pruritus [Recovering/Resolving]
